FAERS Safety Report 24678754 (Version 2)
Quarter: 2024Q4

REPORT INFORMATION
  Report Type: Spontaneous
  Country: JP (occurrence: JP)
  Receive Date: 20241129
  Receipt Date: 20241227
  Transmission Date: 20250114
  Serious: Yes (Other)
  Sender: BOEHRINGER INGELHEIM
  Company Number: JP-NBI-2024-BI-065723

PATIENT
  Age: 9 Decade

DRUGS (1)
  1. JARDIANCE [Suspect]
     Active Substance: EMPAGLIFLOZIN
     Indication: Chronic kidney disease
     Route: 048
     Dates: start: 202411, end: 202411

REACTIONS (1)
  - Ileus paralytic [Recovered/Resolved]

NARRATIVE: CASE EVENT DATE: 20241101
